FAERS Safety Report 8458560-X (Version None)
Quarter: 2012Q2

REPORT INFORMATION
  Report Type: 
  Country: None (occurrence: None)
  Receive Date: 20120622
  Receipt Date: 20120618
  Transmission Date: 20120825
  Serious: Yes (Other)
  Sender: FDA-Public Use
  Company Number: US-PFIZER INC-2012147226

PATIENT
  Sex: Female
  Weight: 97.506 kg

DRUGS (2)
  1. ZOLOFT [Suspect]
     Dosage: UNK
  2. MOBIC [Concomitant]
     Dosage: 15 MG, DAILY

REACTIONS (5)
  - IRRITABILITY [None]
  - ANGER [None]
  - EMOTIONAL DISORDER [None]
  - DIZZINESS [None]
  - MANIA [None]
